FAERS Safety Report 8097243-5 (Version None)
Quarter: 2012Q1

REPORT INFORMATION
  Report Type: 
  Country: None (occurrence: None)
  Receive Date: 20120128
  Receipt Date: 20110705
  Transmission Date: 20120608
  Serious: Yes (Other)
  Sender: FDA-Public Use
  Company Number: US-ABBOTT-11P-163-0731098-00

PATIENT
  Sex: Female
  Weight: 82.628 kg

DRUGS (2)
  1. HUMIRA [Suspect]
     Indication: COLITIS ULCERATIVE
  2. HUMIRA [Suspect]
     Indication: RHEUMATOID ARTHRITIS
     Route: 058
     Dates: start: 20070402, end: 20110524

REACTIONS (3)
  - BREAST CANCER [None]
  - BLOOD ALKALINE PHOSPHATASE INCREASED [None]
  - METASTASES TO LIVER [None]
